FAERS Safety Report 24702742 (Version 1)
Quarter: 2024Q4

REPORT INFORMATION
  Report Type: Spontaneous
  Country: CA (occurrence: CA)
  Receive Date: 20241205
  Receipt Date: 20241205
  Transmission Date: 20250115
  Serious: Yes (Life-Threatening, Hospitalization, Disabling, Other)
  Sender: BRISTOL-MYERS SQUIBB COMPANY
  Company Number: CA-BRISTOL-MYERS SQUIBB COMPANY-2024-179650

PATIENT
  Age: 44 Year
  Sex: Female
  Weight: 97 kg

DRUGS (389)
  1. TRIAMCINOLONE ACETONIDE [Suspect]
     Active Substance: TRIAMCINOLONE ACETONIDE
     Indication: Rheumatoid arthritis
     Route: 014
  2. ORENCIA [Suspect]
     Active Substance: ABATACEPT
     Indication: Rheumatoid arthritis
     Route: 058
  3. ORENCIA [Suspect]
     Active Substance: ABATACEPT
     Indication: Rheumatoid arthritis
     Route: 042
  4. ORENCIA [Suspect]
     Active Substance: ABATACEPT
     Route: 041
  5. ORENCIA [Suspect]
     Active Substance: ABATACEPT
     Indication: Rheumatoid arthritis
  6. ACETAMINOPHEN [Concomitant]
     Active Substance: ACETAMINOPHEN
     Indication: Rheumatoid arthritis
  7. ACETAMINOPHEN [Concomitant]
     Active Substance: ACETAMINOPHEN
  8. ACTEMRA [Concomitant]
     Active Substance: TOCILIZUMAB
     Indication: Rheumatoid arthritis
     Route: 058
  9. ACTEMRA [Concomitant]
     Active Substance: TOCILIZUMAB
     Route: 058
  10. ACTEMRA [Concomitant]
     Active Substance: TOCILIZUMAB
     Route: 042
  11. ACTEMRA [Concomitant]
     Active Substance: TOCILIZUMAB
     Route: 042
  12. ACTEMRA [Concomitant]
     Active Substance: TOCILIZUMAB
  13. ACTEMRA [Concomitant]
     Active Substance: TOCILIZUMAB
     Route: 042
  14. ACTEMRA [Concomitant]
     Active Substance: TOCILIZUMAB
     Route: 042
  15. ACTEMRA [Concomitant]
     Active Substance: TOCILIZUMAB
     Route: 042
  16. ACTEMRA [Concomitant]
     Active Substance: TOCILIZUMAB
     Route: 058
  17. ACTEMRA [Concomitant]
     Active Substance: TOCILIZUMAB
     Route: 042
  18. ACTEMRA [Concomitant]
     Active Substance: TOCILIZUMAB
     Route: 042
  19. ACTEMRA [Concomitant]
     Active Substance: TOCILIZUMAB
     Route: 042
  20. ACTEMRA [Concomitant]
     Active Substance: TOCILIZUMAB
     Route: 042
  21. ADALIMUMAB [Concomitant]
     Active Substance: ADALIMUMAB
     Indication: Psoriatic arthropathy
     Route: 058
  22. ADALIMUMAB [Concomitant]
     Active Substance: ADALIMUMAB
     Route: 048
  23. ADALIMUMAB [Concomitant]
     Active Substance: ADALIMUMAB
     Route: 058
  24. ADALIMUMAB [Concomitant]
     Active Substance: ADALIMUMAB
     Route: 058
  25. ALENDRONIC ACID [Concomitant]
     Active Substance: ALENDRONIC ACID
     Indication: Rheumatoid arthritis
  26. ALENDRONIC ACID [Concomitant]
     Active Substance: ALENDRONIC ACID
     Route: 048
  27. ALENDRONIC ACID [Concomitant]
     Active Substance: ALENDRONIC ACID
  28. ALENDRONIC ACID [Concomitant]
     Active Substance: ALENDRONIC ACID
  29. ALENDRONIC ACID [Concomitant]
     Active Substance: ALENDRONIC ACID
     Route: 048
  30. PREDNISONE [Concomitant]
     Active Substance: PREDNISONE
     Indication: Rheumatoid arthritis
  31. PREDNISONE [Concomitant]
     Active Substance: PREDNISONE
  32. PREDNISONE [Concomitant]
     Active Substance: PREDNISONE
     Route: 048
  33. PREDNISONE [Concomitant]
     Active Substance: PREDNISONE
     Route: 048
  34. PREDNISONE [Concomitant]
     Active Substance: PREDNISONE
  35. APREMILAST [Concomitant]
     Active Substance: APREMILAST
  36. APREMILAST [Concomitant]
     Active Substance: APREMILAST
  37. APREMILAST [Concomitant]
     Active Substance: APREMILAST
     Route: 042
  38. APREMILAST [Concomitant]
     Active Substance: APREMILAST
  39. APREMILAST [Concomitant]
     Active Substance: APREMILAST
  40. APREPITANT [Concomitant]
     Active Substance: APREPITANT
  41. APREPITANT [Concomitant]
     Active Substance: APREPITANT
  42. APREPITANT [Concomitant]
     Active Substance: APREPITANT
     Route: 048
  43. ARAVA [Concomitant]
     Active Substance: LEFLUNOMIDE
     Indication: Rheumatoid arthritis
     Route: 048
  44. ARAVA [Concomitant]
     Active Substance: LEFLUNOMIDE
  45. ARAVA [Concomitant]
     Active Substance: LEFLUNOMIDE
  46. ARAVA [Concomitant]
     Active Substance: LEFLUNOMIDE
     Route: 048
  47. ARAVA [Concomitant]
     Active Substance: LEFLUNOMIDE
     Route: 048
  48. CALCIUM [Concomitant]
     Active Substance: CALCIUM
  49. CALCIUM CARBONATE [Concomitant]
     Active Substance: CALCIUM CARBONATE
  50. CALCIUM GLUBIONATE [Concomitant]
     Active Substance: CALCIUM GLUBIONATE
  51. CELEBREX [Concomitant]
     Active Substance: CELECOXIB
     Route: 048
  52. CELECOXIB [Concomitant]
     Active Substance: CELECOXIB
  53. CELECOXIB [Concomitant]
     Active Substance: CELECOXIB
  54. CERTOLIZUMAB PEGOL [Concomitant]
     Active Substance: CERTOLIZUMAB PEGOL
     Route: 058
  55. CERTOLIZUMAB PEGOL [Concomitant]
     Active Substance: CERTOLIZUMAB PEGOL
     Route: 058
  56. CERTOLIZUMAB PEGOL [Concomitant]
     Active Substance: CERTOLIZUMAB PEGOL
  57. CERTOLIZUMAB PEGOL [Concomitant]
     Active Substance: CERTOLIZUMAB PEGOL
  58. CERTOLIZUMAB PEGOL [Concomitant]
     Active Substance: CERTOLIZUMAB PEGOL
     Route: 058
  59. CERTOLIZUMAB PEGOL [Concomitant]
     Active Substance: CERTOLIZUMAB PEGOL
     Route: 058
  60. CERTOLIZUMAB PEGOL [Concomitant]
     Active Substance: CERTOLIZUMAB PEGOL
  61. CERTOLIZUMAB PEGOL [Concomitant]
     Active Substance: CERTOLIZUMAB PEGOL
  62. CERTOLIZUMAB PEGOL [Concomitant]
     Active Substance: CERTOLIZUMAB PEGOL
     Route: 058
  63. CERTOLIZUMAB PEGOL [Concomitant]
     Active Substance: CERTOLIZUMAB PEGOL
     Route: 058
  64. CETIRIZINE [Concomitant]
     Active Substance: CETIRIZINE HYDROCHLORIDE
     Indication: Rheumatoid arthritis
  65. CETIRIZINE [Concomitant]
     Active Substance: CETIRIZINE HYDROCHLORIDE
  66. CETIRIZINE [Concomitant]
     Active Substance: CETIRIZINE HYDROCHLORIDE
     Route: 048
  67. CETIRIZINE [Concomitant]
     Active Substance: CETIRIZINE HYDROCHLORIDE
     Route: 048
  68. CETIRIZINE HYDROCHLORIDE [Concomitant]
     Active Substance: CETIRIZINE HYDROCHLORIDE
     Indication: Rheumatoid arthritis
     Route: 048
  69. CETIRIZINE HYDROCHLORIDE [Concomitant]
     Active Substance: CETIRIZINE HYDROCHLORIDE
     Indication: Off label use
     Route: 048
  70. CETIRIZINE HYDROCHLORIDE [Concomitant]
     Active Substance: CETIRIZINE HYDROCHLORIDE
  71. CETIRIZINE HYDROCHLORIDE [Concomitant]
     Active Substance: CETIRIZINE HYDROCHLORIDE
  72. CETIRIZINE HYDROCHLORIDE [Concomitant]
     Active Substance: CETIRIZINE HYDROCHLORIDE
  73. CETIRIZINE HYDROCHLORIDE [Concomitant]
     Active Substance: CETIRIZINE HYDROCHLORIDE
  74. CETIRIZINE HYDROCHLORIDE [Concomitant]
     Active Substance: CETIRIZINE HYDROCHLORIDE
     Route: 048
  75. CETIRIZINE HYDROCHLORIDE [Concomitant]
     Active Substance: CETIRIZINE HYDROCHLORIDE
     Route: 048
  76. CETIRIZINE HYDROCHLORIDE [Concomitant]
     Active Substance: CETIRIZINE HYDROCHLORIDE
     Route: 048
  77. CETIRIZINE HYDROCHLORIDE [Concomitant]
     Active Substance: CETIRIZINE HYDROCHLORIDE
  78. CETIRIZINE HYDROCHLORIDE [Concomitant]
     Active Substance: CETIRIZINE HYDROCHLORIDE
     Route: 048
  79. CETIRIZINE HYDROCHLORIDE [Concomitant]
     Active Substance: CETIRIZINE HYDROCHLORIDE
  80. CETIRIZINE HYDROCHLORIDE [Concomitant]
     Active Substance: CETIRIZINE HYDROCHLORIDE
     Route: 048
  81. CETIRIZINE HYDROCHLORIDE [Concomitant]
     Active Substance: CETIRIZINE HYDROCHLORIDE
     Route: 048
  82. CETIRIZINE HYDROCHLORIDE [Concomitant]
     Active Substance: CETIRIZINE HYDROCHLORIDE
  83. CETIRIZINE HYDROCHLORIDE [Concomitant]
     Active Substance: CETIRIZINE HYDROCHLORIDE
  84. CETIRIZINE HYDROCHLORIDE [Concomitant]
     Active Substance: CETIRIZINE HYDROCHLORIDE
     Route: 048
  85. CETIRIZINE HYDROCHLORIDE [Concomitant]
     Active Substance: CETIRIZINE HYDROCHLORIDE
  86. CETIRIZINE HYDROCHLORIDE [Concomitant]
     Active Substance: CETIRIZINE HYDROCHLORIDE
     Route: 048
  87. CETIRIZINE HYDROCHLORIDE [Concomitant]
     Active Substance: CETIRIZINE HYDROCHLORIDE
  88. CHLORAPREP [Concomitant]
     Active Substance: CHLORHEXIDINE GLUCONATE\ISOPROPYL ALCOHOL
     Route: 061
  89. CHLORAPREP [Concomitant]
     Active Substance: CHLORHEXIDINE GLUCONATE\ISOPROPYL ALCOHOL
  90. CHLORHEXIDINE [Concomitant]
     Active Substance: CHLORHEXIDINE
     Route: 061
  91. CHLORHEXIDINE GLUCONATE [Concomitant]
     Active Substance: CHLORHEXIDINE GLUCONATE
     Route: 048
  92. CHLORHEXIDINE GLUCONATE [Concomitant]
     Active Substance: CHLORHEXIDINE GLUCONATE
     Route: 048
  93. CHLORHEXIDINE GLUCONATE [Concomitant]
     Active Substance: CHLORHEXIDINE GLUCONATE
  94. CHOLECALCIFEROL [Concomitant]
     Active Substance: CHOLECALCIFEROL
  95. CIMZIA [Concomitant]
     Active Substance: CERTOLIZUMAB PEGOL
     Indication: Rheumatoid arthritis
  96. CIMZIA [Concomitant]
     Active Substance: CERTOLIZUMAB PEGOL
  97. CIMZIA [Concomitant]
     Active Substance: CERTOLIZUMAB PEGOL
     Route: 058
  98. CIMZIA [Concomitant]
     Active Substance: CERTOLIZUMAB PEGOL
     Route: 058
  99. CIMZIA [Concomitant]
     Active Substance: CERTOLIZUMAB PEGOL
     Route: 058
  100. CIMZIA [Concomitant]
     Active Substance: CERTOLIZUMAB PEGOL
  101. CIMZIA [Concomitant]
     Active Substance: CERTOLIZUMAB PEGOL
     Route: 058
  102. CIMZIA [Concomitant]
     Active Substance: CERTOLIZUMAB PEGOL
     Route: 058
  103. CIMZIA [Concomitant]
     Active Substance: CERTOLIZUMAB PEGOL
     Route: 058
  104. CORTISONE (HYDROCORTISONE) [Concomitant]
     Active Substance: HYDROCORTISONE
     Indication: Rheumatoid arthritis
     Route: 058
  105. CORTISONE ACETATE [Concomitant]
     Active Substance: CORTISONE ACETATE
     Indication: Rheumatoid arthritis
  106. CORTISONE ACETATE [Concomitant]
     Active Substance: CORTISONE ACETATE
     Route: 061
  107. CORTISONE ACETATE [Concomitant]
     Active Substance: CORTISONE ACETATE
  108. CORTISONE ACETATE [Concomitant]
     Active Substance: CORTISONE ACETATE
     Route: 048
  109. CORTISONE ACETATE [Concomitant]
     Active Substance: CORTISONE ACETATE
     Route: 048
  110. CORTISONE ACETATE [Concomitant]
     Active Substance: CORTISONE ACETATE
     Route: 048
  111. COSENTYX [Concomitant]
     Active Substance: SECUKINUMAB
     Indication: Rheumatoid arthritis
     Route: 005
  112. COSENTYX [Concomitant]
     Active Substance: SECUKINUMAB
     Indication: Psoriatic arthropathy
  113. DESOXIMETASONE [Concomitant]
     Active Substance: DESOXIMETASONE
     Indication: Rheumatoid arthritis
     Route: 003
  114. DESOXIMETASONE [Concomitant]
     Active Substance: DESOXIMETASONE
     Route: 058
  115. DESOXIMETASONE [Concomitant]
     Active Substance: DESOXIMETASONE
     Route: 048
  116. DESOXIMETASONE [Concomitant]
     Active Substance: DESOXIMETASONE
     Route: 003
  117. DESOXIMETASONE [Concomitant]
     Active Substance: DESOXIMETASONE
     Route: 048
  118. DESOXIMETASONE [Concomitant]
     Active Substance: DESOXIMETASONE
     Route: 048
  119. DESOXIMETASONE [Concomitant]
     Active Substance: DESOXIMETASONE
  120. DESOXIMETASONE [Concomitant]
     Active Substance: DESOXIMETASONE
  121. DICLOFENAC POTASSIUM [Concomitant]
     Active Substance: DICLOFENAC POTASSIUM
  122. DICLOFENAC POTASSIUM [Concomitant]
     Active Substance: DICLOFENAC POTASSIUM
     Route: 048
  123. DICLOFENAC SODIUM [Concomitant]
     Active Substance: DICLOFENAC SODIUM
     Route: 047
  124. DICLOFENAC SODIUM [Concomitant]
     Active Substance: DICLOFENAC SODIUM
     Route: 047
  125. DICLOFENAC SODIUM [Concomitant]
     Active Substance: DICLOFENAC SODIUM
  126. DICLOFENAC SODIUM [Concomitant]
     Active Substance: DICLOFENAC SODIUM
  127. DICLOFENAC SODIUM [Concomitant]
     Active Substance: DICLOFENAC SODIUM
  128. DICLOFENAC SODIUM [Concomitant]
     Active Substance: DICLOFENAC SODIUM
     Route: 048
  129. DICLOFENAC SODIUM [Concomitant]
     Active Substance: DICLOFENAC SODIUM
  130. DICLOFENAC SODIUM [Concomitant]
     Active Substance: DICLOFENAC SODIUM
  131. DOXYCYCLINE [Concomitant]
     Active Substance: DOXYCYCLINE
  132. ENBREL [Concomitant]
     Active Substance: ETANERCEPT
     Indication: Rheumatoid arthritis
     Route: 058
  133. ENBREL [Concomitant]
     Active Substance: ETANERCEPT
     Indication: Psoriatic arthropathy
     Route: 058
  134. ENBREL [Concomitant]
     Active Substance: ETANERCEPT
     Route: 058
  135. ENBREL [Concomitant]
     Active Substance: ETANERCEPT
  136. ENBREL [Concomitant]
     Active Substance: ETANERCEPT
     Route: 058
  137. ENBREL [Concomitant]
     Active Substance: ETANERCEPT
     Route: 058
  138. ERELZI [Concomitant]
     Active Substance: ETANERCEPT-SZZS
     Indication: Rheumatoid arthritis
  139. ERELZI [Concomitant]
     Active Substance: ETANERCEPT-SZZS
     Route: 058
  140. ERELZI [Concomitant]
     Active Substance: ETANERCEPT-SZZS
     Route: 058
  141. ERELZI [Concomitant]
     Active Substance: ETANERCEPT-SZZS
  142. FLUMETHASONE PIVALATE [Concomitant]
     Active Substance: FLUMETHASONE PIVALATE
     Indication: Rheumatoid arthritis
     Route: 058
  143. FOLIC ACID [Concomitant]
     Active Substance: FOLIC ACID
     Indication: Rheumatoid arthritis
     Route: 048
  144. FOLIC ACID [Concomitant]
     Active Substance: FOLIC ACID
  145. FOLIC ACID [Concomitant]
     Active Substance: FOLIC ACID
     Route: 048
  146. FOLIC ACID [Concomitant]
     Active Substance: FOLIC ACID
  147. FOLIC ACID [Concomitant]
     Active Substance: FOLIC ACID
  148. FOLIC ACID [Concomitant]
     Active Substance: FOLIC ACID
     Route: 058
  149. FOLIC ACID [Concomitant]
     Active Substance: FOLIC ACID
     Route: 048
  150. FOLIC ACID [Concomitant]
     Active Substance: FOLIC ACID
     Route: 048
  151. FOLIC ACID [Concomitant]
     Active Substance: FOLIC ACID
  152. FOLIC ACID [Concomitant]
     Active Substance: FOLIC ACID
  153. FOLIC ACID [Concomitant]
     Active Substance: FOLIC ACID
  154. FOLIC ACID [Concomitant]
     Active Substance: FOLIC ACID
  155. FOLIC ACID [Concomitant]
     Active Substance: FOLIC ACID
  156. FOLIC ACID [Concomitant]
     Active Substance: FOLIC ACID
     Route: 048
  157. FOLIC ACID [Concomitant]
     Active Substance: FOLIC ACID
  158. FOLIC ACID [Concomitant]
     Active Substance: FOLIC ACID
  159. FOLIC ACID [Concomitant]
     Active Substance: FOLIC ACID
     Route: 048
  160. FOLIC ACID [Concomitant]
     Active Substance: FOLIC ACID
  161. FOLIC ACID [Concomitant]
     Active Substance: FOLIC ACID
  162. FOSAMAX [Concomitant]
     Active Substance: ALENDRONATE SODIUM
     Indication: Rheumatoid arthritis
     Route: 048
  163. FOSAMAX [Concomitant]
     Active Substance: ALENDRONATE SODIUM
  164. GOLIMUMAB [Concomitant]
     Active Substance: GOLIMUMAB
     Indication: Rheumatoid arthritis
     Route: 042
  165. GOLIMUMAB [Concomitant]
     Active Substance: GOLIMUMAB
  166. GOLIMUMAB [Concomitant]
     Active Substance: GOLIMUMAB
     Route: 058
  167. GOLIMUMAB [Concomitant]
     Active Substance: GOLIMUMAB
  168. GOLIMUMAB [Concomitant]
     Active Substance: GOLIMUMAB
     Route: 058
  169. GOLIMUMAB [Concomitant]
     Active Substance: GOLIMUMAB
     Route: 052
  170. GOLIMUMAB [Concomitant]
     Active Substance: GOLIMUMAB
     Route: 058
  171. HUMIRA [Concomitant]
     Active Substance: ADALIMUMAB
     Indication: Rheumatoid arthritis
     Route: 058
  172. HUMIRA [Concomitant]
     Active Substance: ADALIMUMAB
     Route: 058
  173. HUMIRA [Concomitant]
     Active Substance: ADALIMUMAB
     Route: 058
  174. HUMIRA [Concomitant]
     Active Substance: ADALIMUMAB
     Route: 058
  175. HYDROCORTISONE BUTYRATE [Concomitant]
     Active Substance: HYDROCORTISONE BUTYRATE
     Indication: Rheumatoid arthritis
     Route: 058
  176. HYDROCORTISONE BUTYRATE [Concomitant]
     Active Substance: HYDROCORTISONE BUTYRATE
  177. HYDROCORTISONE BUTYRATE [Concomitant]
     Active Substance: HYDROCORTISONE BUTYRATE
     Route: 058
  178. HYDROCORTISONE SODIUM SUCCINATE [Concomitant]
     Active Substance: HYDROCORTISONE SODIUM SUCCINATE
     Indication: Rheumatoid arthritis
  179. HYDROCORTISONE SODIUM SUCCINATE [Concomitant]
     Active Substance: HYDROCORTISONE SODIUM SUCCINATE
     Route: 061
  180. HYDROCORTISONE SODIUM SUCCINATE [Concomitant]
     Active Substance: HYDROCORTISONE SODIUM SUCCINATE
     Route: 003
  181. HYDROCORTISONE SODIUM SUCCINATE [Concomitant]
     Active Substance: HYDROCORTISONE SODIUM SUCCINATE
     Route: 058
  182. HYDROCORTISONE SODIUM SUCCINATE [Concomitant]
     Active Substance: HYDROCORTISONE SODIUM SUCCINATE
     Route: 048
  183. HYDROCORTISONE SODIUM SUCCINATE [Concomitant]
     Active Substance: HYDROCORTISONE SODIUM SUCCINATE
  184. HYDROCORTISONE SODIUM SUCCINATE [Concomitant]
     Active Substance: HYDROCORTISONE SODIUM SUCCINATE
  185. HYDROCORTISONE SODIUM SUCCINATE [Concomitant]
     Active Substance: HYDROCORTISONE SODIUM SUCCINATE
  186. HYDROCORTISONE SODIUM SUCCINATE [Concomitant]
     Active Substance: HYDROCORTISONE SODIUM SUCCINATE
     Route: 048
  187. HYDROXYCHLOROQUINE [Concomitant]
     Active Substance: HYDROXYCHLOROQUINE
     Indication: Rheumatoid arthritis
  188. HYDROXYCHLOROQUINE [Concomitant]
     Active Substance: HYDROXYCHLOROQUINE
     Route: 048
  189. HYDROXYCHLOROQUINE [Concomitant]
     Active Substance: HYDROXYCHLOROQUINE
     Route: 048
  190. HYDROXYCHLOROQUINE [Concomitant]
     Active Substance: HYDROXYCHLOROQUINE
  191. HYDROXYCHLOROQUINE [Concomitant]
     Active Substance: HYDROXYCHLOROQUINE
  192. HYDROXYCHLOROQUINE [Concomitant]
     Active Substance: HYDROXYCHLOROQUINE
  193. HYDROXYCHLOROQUINE [Concomitant]
     Active Substance: HYDROXYCHLOROQUINE
  194. HYDROXYCHLOROQUINE [Concomitant]
     Active Substance: HYDROXYCHLOROQUINE
     Route: 048
  195. HYDROXYCHLOROQUINE [Concomitant]
     Active Substance: HYDROXYCHLOROQUINE
     Route: 048
  196. HYDROXYCHLOROQUINE [Concomitant]
     Active Substance: HYDROXYCHLOROQUINE
  197. HYDROXYCHLOROQUINE [Concomitant]
     Active Substance: HYDROXYCHLOROQUINE
     Route: 048
  198. HYDROXYCHLOROQUINE [Concomitant]
     Active Substance: HYDROXYCHLOROQUINE
  199. HYDROXYCHLOROQUINE SULFATE [Concomitant]
     Active Substance: HYDROXYCHLOROQUINE SULFATE
     Indication: Systemic lupus erythematosus
  200. HYDROXYCHLOROQUINE SULFATE [Concomitant]
     Active Substance: HYDROXYCHLOROQUINE SULFATE
     Indication: Rheumatoid arthritis
  201. HYDROXYCHLOROQUINE SULFATE [Concomitant]
     Active Substance: HYDROXYCHLOROQUINE SULFATE
     Route: 048
  202. HYDROXYCHLOROQUINE SULFATE [Concomitant]
     Active Substance: HYDROXYCHLOROQUINE SULFATE
  203. HYDROXYCHLOROQUINE SULFATE [Concomitant]
     Active Substance: HYDROXYCHLOROQUINE SULFATE
     Route: 048
  204. HYDROXYCHLOROQUINE SULFATE [Concomitant]
     Active Substance: HYDROXYCHLOROQUINE SULFATE
     Route: 048
  205. HYDROXYCHLOROQUINE SULFATE [Concomitant]
     Active Substance: HYDROXYCHLOROQUINE SULFATE
  206. HYDROXYCHLOROQUINE SULFATE [Concomitant]
     Active Substance: HYDROXYCHLOROQUINE SULFATE
  207. HYDROXYCHLOROQUINE SULFATE [Concomitant]
     Active Substance: HYDROXYCHLOROQUINE SULFATE
     Route: 048
  208. HYDROXYCHLOROQUINE SULFATE [Concomitant]
     Active Substance: HYDROXYCHLOROQUINE SULFATE
     Route: 058
  209. HYRIMOZ [Concomitant]
     Active Substance: ADALIMUMAB-ADAZ
     Indication: Psoriatic arthropathy
     Route: 058
  210. INFLIXIMAB [Concomitant]
     Active Substance: INFLIXIMAB
     Indication: Rheumatoid arthritis
     Route: 042
  211. INFLIXIMAB [Concomitant]
     Active Substance: INFLIXIMAB
     Route: 042
  212. INFLIXIMAB [Concomitant]
     Active Substance: INFLIXIMAB
  213. INFLIXIMAB [Concomitant]
     Active Substance: INFLIXIMAB
  214. ISOPROPYL ALCOHOL [Concomitant]
     Active Substance: ISOPROPYL ALCOHOL
     Dosage: LIQUID
     Route: 061
  215. ISOPROPYL ALCOHOL [Concomitant]
     Active Substance: ISOPROPYL ALCOHOL
     Route: 061
  216. LEFLUNOMIDE [Concomitant]
     Active Substance: LEFLUNOMIDE
     Indication: Rheumatoid arthritis
     Route: 048
  217. LEFLUNOMIDE [Concomitant]
     Active Substance: LEFLUNOMIDE
  218. LEFLUNOMIDE [Concomitant]
     Active Substance: LEFLUNOMIDE
     Route: 048
  219. LYRICA [Concomitant]
     Active Substance: PREGABALIN
  220. METHOTREXATE [Concomitant]
     Active Substance: METHOTREXATE
     Indication: Rheumatoid arthritis
     Route: 058
  221. METHOTREXATE [Concomitant]
     Active Substance: METHOTREXATE
     Route: 048
  222. METHOTREXATE [Concomitant]
     Active Substance: METHOTREXATE
     Route: 013
  223. METHOTREXATE [Concomitant]
     Active Substance: METHOTREXATE
  224. METHOTREXATE [Concomitant]
     Active Substance: METHOTREXATE
     Route: 048
  225. METHOTREXATE [Concomitant]
     Active Substance: METHOTREXATE
  226. METHOTREXATE [Concomitant]
     Active Substance: METHOTREXATE
     Route: 048
  227. METHOTREXATE [Concomitant]
     Active Substance: METHOTREXATE
     Route: 058
  228. METHOTREXATE [Concomitant]
     Active Substance: METHOTREXATE
     Route: 048
  229. METHOTREXATE [Concomitant]
     Active Substance: METHOTREXATE
     Route: 048
  230. METHOTREXATE [Concomitant]
     Active Substance: METHOTREXATE
  231. METHOTREXATE [Concomitant]
     Active Substance: METHOTREXATE
     Route: 048
  232. METHOTREXATE [Concomitant]
     Active Substance: METHOTREXATE
     Route: 048
  233. METHOTREXATE [Concomitant]
     Active Substance: METHOTREXATE
     Route: 048
  234. METHOTREXATE [Concomitant]
     Active Substance: METHOTREXATE
     Route: 048
  235. METHOTREXATE [Concomitant]
     Active Substance: METHOTREXATE
     Route: 058
  236. METHOTREXATE [Concomitant]
     Active Substance: METHOTREXATE
     Route: 048
  237. METHOTREXATE [Concomitant]
     Active Substance: METHOTREXATE
     Route: 013
  238. METHOTREXATE [Concomitant]
     Active Substance: METHOTREXATE
     Route: 048
  239. METHOTREXATE [Concomitant]
     Active Substance: METHOTREXATE
  240. METHOTREXATE [Concomitant]
     Active Substance: METHOTREXATE
     Route: 048
  241. METHOTREXATE [Concomitant]
     Active Substance: METHOTREXATE
     Route: 048
  242. METHOTREXATE [Concomitant]
     Active Substance: METHOTREXATE
     Route: 048
  243. METHOTREXATE [Concomitant]
     Active Substance: METHOTREXATE
     Route: 058
  244. METHOTREXATE [Concomitant]
     Active Substance: METHOTREXATE
     Route: 013
  245. METHOTREXATE [Concomitant]
     Active Substance: METHOTREXATE
     Route: 048
  246. METHOTREXATE [Concomitant]
     Active Substance: METHOTREXATE
     Route: 013
  247. METHOTREXATE [Concomitant]
     Active Substance: METHOTREXATE
  248. METHOTREXATE [Concomitant]
     Active Substance: METHOTREXATE
     Route: 048
  249. METHOTREXATE [Concomitant]
     Active Substance: METHOTREXATE
     Route: 048
  250. METHOTREXATE [Concomitant]
     Active Substance: METHOTREXATE
  251. METHOTREXATE [Concomitant]
     Active Substance: METHOTREXATE
     Route: 048
  252. METHOTREXATE [Concomitant]
     Active Substance: METHOTREXATE
  253. METHOTREXATE [Concomitant]
     Active Substance: METHOTREXATE
  254. METHOTREXATE [Concomitant]
     Active Substance: METHOTREXATE
     Route: 048
  255. METHOTREXATE [Concomitant]
     Active Substance: METHOTREXATE
     Route: 013
  256. METHOTREXATE [Concomitant]
     Active Substance: METHOTREXATE
     Route: 013
  257. METHOTREXATE [Concomitant]
     Active Substance: METHOTREXATE
     Route: 058
  258. METHOTREXATE [Concomitant]
     Active Substance: METHOTREXATE
     Route: 013
  259. METHOTREXATE [Concomitant]
     Active Substance: METHOTREXATE
     Route: 048
  260. METHOTREXATE [Concomitant]
     Active Substance: METHOTREXATE
     Route: 048
  261. METHOTREXATE [Concomitant]
     Active Substance: METHOTREXATE
     Route: 048
  262. METHOTREXATE [Concomitant]
     Active Substance: METHOTREXATE
     Route: 058
  263. METHOTREXATE [Concomitant]
     Active Substance: METHOTREXATE
     Route: 048
  264. METHOTREXATE [Concomitant]
     Active Substance: METHOTREXATE
     Route: 058
  265. METHOTREXATE [Concomitant]
     Active Substance: METHOTREXATE
     Route: 058
  266. METHOTREXATE [Concomitant]
     Active Substance: METHOTREXATE
     Route: 048
  267. METHOTREXATE [Concomitant]
     Active Substance: METHOTREXATE
     Route: 013
  268. METHOTREXATE [Concomitant]
     Active Substance: METHOTREXATE
  269. METHOTREXATE [Concomitant]
     Active Substance: METHOTREXATE
  270. METHOTREXATE [Concomitant]
     Active Substance: METHOTREXATE
     Route: 048
  271. METHOTREXATE [Concomitant]
     Active Substance: METHOTREXATE
     Route: 048
  272. METHOTREXATE [Concomitant]
     Active Substance: METHOTREXATE
     Route: 048
  273. METHOTREXATE [Concomitant]
     Active Substance: METHOTREXATE
  274. METHOTREXATE [Concomitant]
     Active Substance: METHOTREXATE
  275. METHOTREXATE [Concomitant]
     Active Substance: METHOTREXATE
     Route: 048
  276. METHOTREXATE [Concomitant]
     Active Substance: METHOTREXATE
     Route: 013
  277. METHOTREXATE [Concomitant]
     Active Substance: METHOTREXATE
     Route: 058
  278. METHOTREXATE [Concomitant]
     Active Substance: METHOTREXATE
     Route: 048
  279. MYCOPHENOLATE MOFETIL [Concomitant]
     Active Substance: MYCOPHENOLATE MOFETIL
  280. NAPROXEN SODIUM [Concomitant]
     Active Substance: NAPROXEN SODIUM
     Indication: Rheumatoid arthritis
  281. NAPROXEN SODIUM [Concomitant]
     Active Substance: NAPROXEN SODIUM
  282. NEOMYCIN [Concomitant]
     Active Substance: NEOMYCIN
  283. OTEZLA [Concomitant]
     Active Substance: APREMILAST
     Route: 048
  284. OXYCODONE [Concomitant]
     Active Substance: OXYCODONE
  285. OXYCODONE HYDROCHLORIDE [Concomitant]
     Active Substance: OXYCODONE HYDROCHLORIDE
  286. OXYCODONE TEREPHTHALATE [Concomitant]
     Active Substance: OXYCODONE TEREPHTHALATE
     Route: 016
  287. OXYCODONE TEREPHTHALATE [Concomitant]
     Active Substance: OXYCODONE TEREPHTHALATE
  288. PANTOPRAZOLE SODIUM [Concomitant]
     Active Substance: PANTOPRAZOLE SODIUM
  289. PERCOCET [Concomitant]
     Active Substance: ACETAMINOPHEN\OXYCODONE HYDROCHLORIDE
  290. PERIOGARD [Concomitant]
     Active Substance: CHLORHEXIDINE GLUCONATE
  291. PHTHALYLSULFATHIAZOLE [Concomitant]
     Active Substance: PHTHALYLSULFATHIAZOLE
     Route: 016
  292. PHTHALYLSULFATHIAZOLE [Concomitant]
     Active Substance: PHTHALYLSULFATHIAZOLE
     Route: 048
  293. PHTHALYLSULFATHIAZOLE [Concomitant]
     Active Substance: PHTHALYLSULFATHIAZOLE
  294. PHTHALYLSULFATHIAZOLE [Concomitant]
     Active Substance: PHTHALYLSULFATHIAZOLE
     Route: 048
  295. PHTHALYLSULFATHIAZOLE [Concomitant]
     Active Substance: PHTHALYLSULFATHIAZOLE
     Route: 048
  296. PHTHALYLSULFATHIAZOLE [Concomitant]
     Active Substance: PHTHALYLSULFATHIAZOLE
     Route: 048
  297. PHTHALYLSULFATHIAZOLE [Concomitant]
     Active Substance: PHTHALYLSULFATHIAZOLE
  298. PHTHALYLSULFATHIAZOLE [Concomitant]
     Active Substance: PHTHALYLSULFATHIAZOLE
     Route: 042
  299. PREDNISONE [Concomitant]
     Active Substance: PREDNISONE
     Indication: Rheumatoid arthritis
     Route: 048
  300. PREDNISONE [Concomitant]
     Active Substance: PREDNISONE
     Indication: Psoriatic arthropathy
  301. PREDNISONE [Concomitant]
     Active Substance: PREDNISONE
     Indication: Condition aggravated
  302. PREDNISONE [Concomitant]
     Active Substance: PREDNISONE
     Route: 048
  303. PREDNISONE [Concomitant]
     Active Substance: PREDNISONE
  304. PREDNISONE [Concomitant]
     Active Substance: PREDNISONE
     Route: 048
  305. PREDNISONE [Concomitant]
     Active Substance: PREDNISONE
     Route: 048
  306. PREDNISONE [Concomitant]
     Active Substance: PREDNISONE
  307. PREDNISONE [Concomitant]
     Active Substance: PREDNISONE
     Route: 042
  308. PREGABALIN [Concomitant]
     Active Substance: PREGABALIN
  309. PSEUDOEPHEDRINE [Concomitant]
     Active Substance: PSEUDOEPHEDRINE
  310. PSEUDOEPHEDRINE HYDROCHLORIDE [Concomitant]
     Active Substance: PSEUDOEPHEDRINE HYDROCHLORIDE
     Indication: Rheumatoid arthritis
  311. CETIRIZINE HYDROCHLORIDE\PSEUDOEPHEDRINE HYDROCHLORIDE [Concomitant]
     Active Substance: CETIRIZINE HYDROCHLORIDE\PSEUDOEPHEDRINE HYDROCHLORIDE
     Indication: Rheumatoid arthritis
  312. CETIRIZINE HYDROCHLORIDE\PSEUDOEPHEDRINE HYDROCHLORIDE [Concomitant]
     Active Substance: CETIRIZINE HYDROCHLORIDE\PSEUDOEPHEDRINE HYDROCHLORIDE
  313. CETIRIZINE HYDROCHLORIDE\PSEUDOEPHEDRINE HYDROCHLORIDE [Concomitant]
     Active Substance: CETIRIZINE HYDROCHLORIDE\PSEUDOEPHEDRINE HYDROCHLORIDE
  314. CETIRIZINE HYDROCHLORIDE\PSEUDOEPHEDRINE HYDROCHLORIDE [Concomitant]
     Active Substance: CETIRIZINE HYDROCHLORIDE\PSEUDOEPHEDRINE HYDROCHLORIDE
     Route: 048
  315. CETIRIZINE HYDROCHLORIDE [Concomitant]
     Active Substance: CETIRIZINE HYDROCHLORIDE
     Indication: Rheumatoid arthritis
     Route: 048
  316. CETIRIZINE HYDROCHLORIDE [Concomitant]
     Active Substance: CETIRIZINE HYDROCHLORIDE
  317. CETIRIZINE HYDROCHLORIDE [Concomitant]
     Active Substance: CETIRIZINE HYDROCHLORIDE
  318. REMICADE [Concomitant]
     Active Substance: INFLIXIMAB
     Indication: Rheumatoid arthritis
     Route: 042
  319. REMICADE [Concomitant]
     Active Substance: INFLIXIMAB
     Route: 042
  320. REMICADE [Concomitant]
     Active Substance: INFLIXIMAB
  321. RITUXIMAB [Concomitant]
     Active Substance: RITUXIMAB
     Indication: Rheumatoid arthritis
     Route: 058
  322. RITUXIMAB [Concomitant]
     Active Substance: RITUXIMAB
     Route: 042
  323. RITUXIMAB [Concomitant]
     Active Substance: RITUXIMAB
     Route: 042
  324. RITUXIMAB [Concomitant]
     Active Substance: RITUXIMAB
     Route: 041
  325. SULFASALAZINE [Concomitant]
     Active Substance: SULFASALAZINE
     Indication: Rheumatoid arthritis
  326. SULFASALAZINE [Concomitant]
     Active Substance: SULFASALAZINE
     Route: 048
  327. SULFASALAZINE [Concomitant]
     Active Substance: SULFASALAZINE
     Route: 048
  328. SULFASALAZINE [Concomitant]
     Active Substance: SULFASALAZINE
     Route: 048
  329. SULFASALAZINE [Concomitant]
     Active Substance: SULFASALAZINE
     Route: 048
  330. SIMPONI [Concomitant]
     Active Substance: GOLIMUMAB
     Indication: Rheumatoid arthritis
  331. SIMPONI [Concomitant]
     Active Substance: GOLIMUMAB
     Indication: Psoriatic arthropathy
     Route: 052
  332. SIMPONI [Concomitant]
     Active Substance: GOLIMUMAB
     Route: 058
  333. SIMPONI [Concomitant]
     Active Substance: GOLIMUMAB
     Route: 042
  334. SIMPONI [Concomitant]
     Active Substance: GOLIMUMAB
     Route: 058
  335. SULFAMETHOXAZOLE [Concomitant]
     Active Substance: SULFAMETHOXAZOLE
  336. SULFAMETHOXAZOLE AND TRIMETHOPRIM [Concomitant]
     Active Substance: SULFAMETHOXAZOLE\TRIMETHOPRIM
  337. SULFASALAZINE [Concomitant]
     Active Substance: SULFASALAZINE
     Indication: Rheumatoid arthritis
     Route: 048
  338. SULFASALAZINE [Concomitant]
     Active Substance: SULFASALAZINE
     Route: 048
  339. SULFASALAZINE [Concomitant]
     Active Substance: SULFASALAZINE
     Route: 048
  340. SULFASALAZINE [Concomitant]
     Active Substance: SULFASALAZINE
     Route: 048
  341. SULFASALAZINE [Concomitant]
     Active Substance: SULFASALAZINE
     Route: 048
  342. SULFASALAZINE [Concomitant]
     Active Substance: SULFASALAZINE
     Route: 058
  343. SULFASALAZINE [Concomitant]
     Active Substance: SULFASALAZINE
     Route: 048
  344. SULFASALAZINE [Concomitant]
     Active Substance: SULFASALAZINE
  345. SULFASALAZINE [Concomitant]
     Active Substance: SULFASALAZINE
     Route: 048
  346. SULFASALAZINE [Concomitant]
     Active Substance: SULFASALAZINE
     Route: 048
  347. SULFASALAZINE [Concomitant]
     Active Substance: SULFASALAZINE
     Route: 048
  348. SULFASALAZINE [Concomitant]
     Active Substance: SULFASALAZINE
     Route: 048
  349. SULFASALAZINE [Concomitant]
     Active Substance: SULFASALAZINE
     Route: 048
  350. SULFASALAZINE [Concomitant]
     Active Substance: SULFASALAZINE
     Route: 058
  351. SULFASALAZINE [Concomitant]
     Active Substance: SULFASALAZINE
  352. SULFASALAZINE [Concomitant]
     Active Substance: SULFASALAZINE
     Route: 048
  353. SULFASALAZINE [Concomitant]
     Active Substance: SULFASALAZINE
  354. SULFASALAZINE [Concomitant]
     Active Substance: SULFASALAZINE
  355. SULFASALAZINE [Concomitant]
     Active Substance: SULFASALAZINE
  356. SULFASALAZINE [Concomitant]
     Active Substance: SULFASALAZINE
     Route: 048
  357. SULFASALAZINE [Concomitant]
     Active Substance: SULFASALAZINE
     Route: 048
  358. SULFASALAZINE [Concomitant]
     Active Substance: SULFASALAZINE
  359. SULFASALAZINE [Concomitant]
     Active Substance: SULFASALAZINE
  360. SULFASALAZINE [Concomitant]
     Active Substance: SULFASALAZINE
     Route: 048
  361. SULFASALAZINE [Concomitant]
     Active Substance: SULFASALAZINE
  362. SULFASALAZINE [Concomitant]
     Active Substance: SULFASALAZINE
     Route: 048
  363. TOCILIZUMAB [Concomitant]
     Active Substance: TOCILIZUMAB
     Indication: Rheumatoid arthritis
     Route: 058
  364. TOCILIZUMAB [Concomitant]
     Active Substance: TOCILIZUMAB
  365. TOFACITINIB CITRATE [Concomitant]
     Active Substance: TOFACITINIB CITRATE
     Indication: Rheumatoid arthritis
     Route: 058
  366. TOFACITINIB CITRATE [Concomitant]
     Active Substance: TOFACITINIB CITRATE
     Indication: Psoriatic arthropathy
     Route: 048
  367. TOFACITINIB CITRATE [Concomitant]
     Active Substance: TOFACITINIB CITRATE
     Route: 048
  368. TOFACITINIB CITRATE [Concomitant]
     Active Substance: TOFACITINIB CITRATE
  369. TOPICORT [Concomitant]
     Active Substance: DESOXIMETASONE
     Indication: Rheumatoid arthritis
     Route: 058
  370. TOPICORT [Concomitant]
     Active Substance: DESOXIMETASONE
     Route: 003
  371. TOPICORT [Concomitant]
     Active Substance: DESOXIMETASONE
  372. TOPICORT [Concomitant]
     Active Substance: DESOXIMETASONE
     Route: 048
  373. TRAMADOL HYDROCHLORIDE [Concomitant]
     Active Substance: TRAMADOL HYDROCHLORIDE
  374. USTEKINUMAB [Concomitant]
     Active Substance: USTEKINUMAB
     Indication: Psoriatic arthropathy
     Route: 042
  375. USTEKINUMAB [Concomitant]
     Active Substance: USTEKINUMAB
     Route: 058
  376. VITAMIN C [Concomitant]
     Active Substance: ASCORBIC ACID
  377. DICLOFENAC [Concomitant]
     Active Substance: DICLOFENAC
     Route: 048
  378. DICLOFENAC [Concomitant]
     Active Substance: DICLOFENAC
  379. DICLOFENAC [Concomitant]
     Active Substance: DICLOFENAC
     Route: 058
  380. DICLOFENAC [Concomitant]
     Active Substance: DICLOFENAC
  381. DICLOFENAC [Concomitant]
     Active Substance: DICLOFENAC
     Route: 047
  382. DICLOFENAC [Concomitant]
     Active Substance: DICLOFENAC
     Route: 048
  383. DICLOFENAC [Concomitant]
     Active Substance: DICLOFENAC
     Route: 058
  384. PREDNISONE [Concomitant]
     Active Substance: PREDNISONE
     Indication: Rheumatoid arthritis
     Route: 048
  385. XELJANZ [Concomitant]
     Active Substance: TOFACITINIB CITRATE
  386. XELJANZ [Concomitant]
     Active Substance: TOFACITINIB CITRATE
  387. XELJANZ [Concomitant]
     Active Substance: TOFACITINIB CITRATE
  388. XELJANZ [Concomitant]
     Active Substance: TOFACITINIB CITRATE
  389. XELJANZ [Concomitant]
     Active Substance: TOFACITINIB CITRATE

REACTIONS (57)
  - C-reactive protein [Unknown]
  - Drug ineffective [Unknown]
  - Drug intolerance [Unknown]
  - Dry mouth [Unknown]
  - Duodenal ulcer perforation [Unknown]
  - Facet joint syndrome [Unknown]
  - Fatigue [Unknown]
  - Fibromyalgia [Unknown]
  - Folliculitis [Unknown]
  - General physical health deterioration [Unknown]
  - Glossodynia [Unknown]
  - Hand deformity [Unknown]
  - Hypoaesthesia [Unknown]
  - Ill-defined disorder [Unknown]
  - Impaired healing [Unknown]
  - Infection [Unknown]
  - Inflammation [Unknown]
  - Infusion related reaction [Unknown]
  - Injury [Unknown]
  - Insomnia [Unknown]
  - Irritable bowel syndrome [Unknown]
  - Joint range of motion decreased [Unknown]
  - Joint swelling [Unknown]
  - Lip dry [Unknown]
  - Liver disorder [Unknown]
  - Malaise [Unknown]
  - Medication error [Unknown]
  - Mobility decreased [Unknown]
  - Off label use [Unknown]
  - Pruritus [Unknown]
  - Psoriatic arthropathy [Unknown]
  - Pyrexia [Unknown]
  - Rash [Unknown]
  - Rheumatic fever [Unknown]
  - Rheumatoid arthritis [Unknown]
  - Rheumatoid factor positive [Unknown]
  - Road traffic accident [Unknown]
  - Sciatica [Unknown]
  - Sinusitis [Unknown]
  - Sleep disorder [Unknown]
  - Sleep disorder due to general medical condition, insomnia type [Unknown]
  - Stomatitis [Unknown]
  - Swelling [Unknown]
  - Swollen joint count increased [Unknown]
  - Synovitis [Unknown]
  - Systemic lupus erythematosus [Unknown]
  - Therapeutic product effect decreased [Unknown]
  - Therapy non-responder [Unknown]
  - Treatment failure [Unknown]
  - Type 2 diabetes mellitus [Unknown]
  - Urticaria [Unknown]
  - Vomiting [Unknown]
  - Weight increased [Unknown]
  - Wheezing [Unknown]
  - Wound [Unknown]
  - Hospitalisation [Unknown]
  - Adverse event [Unknown]
